FAERS Safety Report 5044329-5 (Version None)
Quarter: 2006Q2

REPORT INFORMATION
  Report Type: 
  Country: None (occurrence: None)
  Receive Date: 20060629
  Receipt Date: 20060621
  Transmission Date: 20061013
  Serious: Yes (Other)
  Sender: FDA-Public Use
  Company Number: 2006079174

PATIENT
  Sex: Female

DRUGS (1)
  1. TAHOR (ATORVASTATIN) [Suspect]
     Dosage: 20 MG (1 IN 1 D), ORAL
     Route: 048

REACTIONS (1)
  - TENDON RUPTURE [None]
